FAERS Safety Report 20867297 (Version 1)
Quarter: 2022Q2

REPORT INFORMATION
  Report Type: Spontaneous
  Country: US (occurrence: US)
  Receive Date: 20220524
  Receipt Date: 20220524
  Transmission Date: 20220721
  Serious: No
  Sender: FDA-Public Use
  Company Number: US-PFIZER INC-202200373451

PATIENT
  Age: 56 Year
  Sex: Male

DRUGS (3)
  1. XELJANZ [Suspect]
     Active Substance: TOFACITINIB CITRATE
     Indication: Colitis ulcerative
     Dosage: 10 MG, 2X/DAY
     Route: 048
     Dates: start: 20211224
  2. XELJANZ [Suspect]
     Active Substance: TOFACITINIB CITRATE
     Dosage: 10 MG, 1X/DAY (FOR ABOUT 2-3 WEEKS)
     Dates: start: 20211224
  3. FLORASTOR [SACCHAROMYCES BOULARDII] [Concomitant]
     Dosage: UNK

REACTIONS (3)
  - Product dose omission issue [Unknown]
  - Therapeutic response unexpected [Unknown]
  - Sleep disorder [Unknown]
